FAERS Safety Report 10083752 (Version 1)
Quarter: 2014Q2

REPORT INFORMATION
  Report Type: Report from Study
  Country: BR (occurrence: BR)
  Receive Date: 20140417
  Receipt Date: 20140417
  Transmission Date: 20141212
  Serious: Yes (Hospitalization, Other)
  Sender: FDA-Public Use
  Company Number: PHHY2014BR044331

PATIENT
  Sex: Female
  Weight: 115 kg

DRUGS (5)
  1. EXJADE [Suspect]
     Indication: IRON OVERLOAD
     Dosage: 8 DF, DAILY (4 YEARS AGO)
  2. EXJADE [Suspect]
     Dosage: 5 DF, DAILY
  3. HYDROCHLOROTHIAZIDE [Concomitant]
     Indication: BLOOD PRESSURE
     Dosage: 1 DF, QD
  4. LOSARTAN [Concomitant]
     Indication: BLOOD PRESSURE
     Dosage: 1 DF, QD
  5. SERTRALINE [Concomitant]
     Indication: ANXIETY
     Dosage: 1 DF, QD

REACTIONS (12)
  - Neutropenia [Recovered/Resolved]
  - Urinary tract infection [Recovered/Resolved]
  - Cystitis [Recovered/Resolved]
  - Infection [Unknown]
  - Diarrhoea [Not Recovered/Not Resolved]
  - Abdominal pain [Not Recovered/Not Resolved]
  - Stress [Unknown]
  - Asthenia [Unknown]
  - Haemoglobin decreased [Unknown]
  - Influenza [Unknown]
  - Pyrexia [Unknown]
  - Fatigue [Unknown]
